FAERS Safety Report 25045525 (Version 1)
Quarter: 2025Q1

REPORT INFORMATION
  Report Type: Spontaneous
  Country: CO (occurrence: CO)
  Receive Date: 20250306
  Receipt Date: 20250306
  Transmission Date: 20250408
  Serious: Yes (Hospitalization, Other)
  Sender: REGENERON
  Company Number: CO-SA-2025SA065871

PATIENT
  Age: 76 Year
  Sex: Female

DRUGS (1)
  1. PRALUENT [Suspect]
     Active Substance: ALIROCUMAB
     Indication: Hypercholesterolaemia
     Dosage: 75 MG, QOW
     Route: 058
     Dates: start: 2017

REACTIONS (3)
  - Dengue haemorrhagic fever [Recovered/Resolved]
  - Fall [Unknown]
  - Peripheral swelling [Recovered/Resolved]

NARRATIVE: CASE EVENT DATE: 20250201
